FAERS Safety Report 15547322 (Version 2)
Quarter: 2018Q4

REPORT INFORMATION
  Report Type: Spontaneous
  Country: FR (occurrence: FR)
  Receive Date: 20181024
  Receipt Date: 20181108
  Transmission Date: 20190205
  Serious: Yes (Other)
  Sender: FDA-Public Use
  Company Number: FR-MYLANLABS-2018M1079821

PATIENT
  Age: 57 Year
  Sex: Male

DRUGS (4)
  1. STREPTOZOCIN [Suspect]
     Active Substance: STREPTOZOCIN
     Indication: PANCREATIC NEUROENDOCRINE TUMOUR
     Dosage: 400 MG/M2, CYCLE (DS (400 MG/M2) CYCLICAL)
  2. STREPTOZOCIN [Suspect]
     Active Substance: STREPTOZOCIN
     Dosage: UNK, CYCLE
  3. FLUOROURACIL. [Suspect]
     Active Substance: FLUOROURACIL
     Indication: PANCREATIC NEUROENDOCRINE TUMOUR
     Dosage: UNK, CYCLE
  4. DOXORUBICIN [Suspect]
     Active Substance: DOXORUBICIN
     Indication: PANCREATIC NEUROENDOCRINE TUMOUR
     Dosage: 400 MG/M2, CYCLE

REACTIONS (2)
  - Toxicity to various agents [Unknown]
  - Left ventricular dysfunction [Unknown]
